FAERS Safety Report 23228354 (Version 5)
Quarter: 2024Q3

REPORT INFORMATION
  Report Type: Report from Study
  Country: GB (occurrence: GB)
  Receive Date: 20231125
  Receipt Date: 20240807
  Transmission Date: 20241017
  Serious: Yes (Other)
  Sender: NOVARTIS
  Company Number: GB-002147023-NVSC2023GB246703

PATIENT
  Age: 38 Year
  Sex: Female

DRUGS (1)
  1. KESIMPTA [Suspect]
     Active Substance: OFATUMUMAB
     Indication: Relapsing-remitting multiple sclerosis
     Dosage: 20 MG, QW
     Route: 058
     Dates: start: 20231116

REACTIONS (8)
  - Syncope [Recovering/Resolving]
  - Tremor [Recovered/Resolved]
  - Feeling cold [Recovered/Resolved]
  - Headache [Recovered/Resolved]
  - Body temperature increased [Recovering/Resolving]
  - Fatigue [Recovering/Resolving]
  - Pain [Recovered/Resolved]
  - Sinusitis [Recovered/Resolved]

NARRATIVE: CASE EVENT DATE: 20231116
